FAERS Safety Report 15762292 (Version 1)
Quarter: 2018Q4

REPORT INFORMATION
  Report Type: Spontaneous
  Country: GB (occurrence: GB)
  Receive Date: 20181226
  Receipt Date: 20181226
  Transmission Date: 20190205
  Serious: Yes (Other)
  Sender: FDA-Public Use
  Company Number: GB-CANTON LABORATORIES, LLC-2060576

PATIENT
  Age: 41 Year
  Weight: 94 kg

DRUGS (2)
  1. NAPROSYN [Suspect]
     Active Substance: NAPROXEN
     Indication: ARTHRALGIA
     Route: 048
     Dates: start: 20181009, end: 20181014
  2. INFLUENZA VACCINE(SANOFI PASTEUR MSD INFLUENZA A/WUHAN/359/95(H3N2)-LI [Suspect]
     Active Substance: INFLUENZA VIRUS VACCINE
     Route: 030
     Dates: start: 20181009, end: 20181009

REACTIONS (3)
  - Hemiparesis [Recovering/Resolving]
  - Cerebral haemorrhage [Recovering/Resolving]
  - Headache [Recovering/Resolving]

NARRATIVE: CASE EVENT DATE: 20181016
